FAERS Safety Report 9036752 (Version 1)
Quarter: 2013Q1

REPORT INFORMATION
  Report Type: Spontaneous
  Country: DK (occurrence: None)
  Receive Date: 20130114
  Receipt Date: 20130114
  Transmission Date: 20140127
  Serious: Yes (Hospitalization)
  Sender: FDA-Public Use
  Company Number: 2013MA000230

PATIENT
  Age: 69 Year
  Sex: Female

DRUGS (11)
  1. BUTALBITAL, ASPIRIN (ACETYLSALICYLIC ACID) AND CAFFEINE TABLETS USP 50MG/325MG/40MG (AELLC) (BUTALBITAL, ASPIRIN AND CAFFEINE) [Suspect]
     Route: 048
  2. CLOPIDOGREL (CLOPIDOGREL) [Suspect]
     Route: 048
     Dates: start: 20121001
  3. BISOPROLOL [Concomitant]
  4. QUETIAPINE [Concomitant]
  5. METFORMIN [Concomitant]
  6. LEVOTHYROXINE SODIUM [Concomitant]
  7. SIMVASTATIN [Concomitant]
  8. FERROUS FUMARATE [Concomitant]
  9. SPIRIVA [Concomitant]
  10. UNIPHYLLIN CONTINUS [Concomitant]
  11. SALBUTAMOL [Concomitant]

REACTIONS (1)
  - Duodenal ulcer haemorrhage [None]
